FAERS Safety Report 5612018-1 (Version None)
Quarter: 2008Q1

REPORT INFORMATION
  Report Type: 
  Country: None (occurrence: None)
  Receive Date: 20080129
  Receipt Date: 20080129
  Transmission Date: 20080703
  Serious: No
  Sender: FDA-Public Use
  Company Number: None

PATIENT

DRUGS (1)
  1. LOVENOX [Suspect]
     Indication: THROMBOSIS PROPHYLAXIS
     Dosage: ALL  IV
     Route: 042

REACTIONS (3)
  - ACCIDENTAL NEEDLE STICK [None]
  - DEVICE BREAKAGE [None]
  - PHARMACEUTICAL PRODUCT COMPLAINT [None]
